FAERS Safety Report 9856215 (Version 2)
Quarter: 2014Q2

REPORT INFORMATION
  Report Type: Spontaneous
  Country: FR (occurrence: FR)
  Receive Date: 20140130
  Receipt Date: 20140506
  Transmission Date: 20141212
  Serious: Yes (Hospitalization)
  Sender: FDA-Public Use
  Company Number: FR-PFIZER INC-2014026376

PATIENT
  Age: 79 Year
  Sex: Female

DRUGS (16)
  1. SPIRONOLACTONE [Suspect]
     Dosage: 25 MG, DAILY
     Route: 048
     Dates: end: 201308
  2. CORDARONE [Suspect]
     Dosage: UNK
     Route: 048
     Dates: end: 201308
  3. PIROXICAM BIOGARAN [Suspect]
     Indication: BACK PAIN
     Dosage: UNK
     Route: 048
     Dates: start: 20130827, end: 20130829
  4. FOSINOPRIL BIOGARAN [Suspect]
     Dosage: 10 MG, DAILY
     Route: 048
     Dates: end: 201308
  5. CORTANCYL [Suspect]
     Dosage: UNK
     Route: 048
     Dates: end: 201308
  6. ALLOPURINOL [Concomitant]
  7. FUROSEMIDE [Concomitant]
  8. BISOPROLOL [Concomitant]
  9. LEVOTHYROX [Concomitant]
  10. BUSPIRONE [Concomitant]
  11. NOCTAMID [Concomitant]
  12. ATORVASTATIN [Concomitant]
  13. PREVISCAN [Concomitant]
  14. LANTUS [Concomitant]
  15. PARIET [Concomitant]
  16. CYMBALTA [Concomitant]

REACTIONS (3)
  - Renal failure acute [Recovering/Resolving]
  - Hyperkalaemia [Recovered/Resolved]
  - Bradycardia [Unknown]
